FAERS Safety Report 5374677-0 (Version None)
Quarter: 2007Q2

REPORT INFORMATION
  Report Type: 
  Country: None (occurrence: None)
  Receive Date: 20070629
  Receipt Date: 20070620
  Transmission Date: 20071010
  Serious: Yes (Hospitalization, Disabling, Other)
  Sender: FDA-Public Use
  Company Number: CA-JNJFOC-20070601799

PATIENT
  Sex: Female

DRUGS (7)
  1. TOPAMAX [Suspect]
     Indication: DRUG THERAPY
     Route: 048
  2. TOPAMAX [Suspect]
     Indication: EPILEPSY
     Route: 048
  3. BENZTROPINE [Concomitant]
     Indication: EXTRAPYRAMIDAL DISORDER
     Route: 048
  4. CLOPIXOL [Concomitant]
     Indication: PSYCHOTIC DISORDER
     Route: 048
  5. LAMOTRIGINE [Concomitant]
     Indication: CONVULSION
     Route: 048
  6. CLONAZEPAM [Concomitant]
     Indication: ANXIETY
     Route: 048
  7. CITALOPRAM HYDROBROMIDE [Concomitant]
     Indication: DEPRESSION
     Route: 048

REACTIONS (11)
  - BALANCE DISORDER [None]
  - CEREBROVASCULAR ACCIDENT [None]
  - COGNITIVE DISORDER [None]
  - DIZZINESS [None]
  - DROOLING [None]
  - DYSARTHRIA [None]
  - FACIAL PALSY [None]
  - FALL [None]
  - GAIT DISTURBANCE [None]
  - HEMIPLEGIA [None]
  - SOMNOLENCE [None]
